FAERS Safety Report 19073211 (Version 1)
Quarter: 2021Q1

REPORT INFORMATION
  Report Type: Spontaneous
  Country: US (occurrence: US)
  Receive Date: 20210330
  Receipt Date: 20210330
  Transmission Date: 20210420
  Serious: Yes (Other)
  Sender: FDA-Public Use
  Company Number: US-SA-2021SA095605

PATIENT
  Sex: Female

DRUGS (2)
  1. AVAPRO [Suspect]
     Active Substance: IRBESARTAN
     Indication: HYPERTENSION
     Dosage: 75 MG, QD
  2. IRBESARTAN. [Suspect]
     Active Substance: IRBESARTAN
     Dosage: UNK

REACTIONS (5)
  - Cerebrovascular accident [Unknown]
  - Dizziness [Unknown]
  - Visual impairment [Unknown]
  - Blood pressure increased [Unknown]
  - Hypoaesthesia [Unknown]
